FAERS Safety Report 5735381-X (Version None)
Quarter: 2008Q2

REPORT INFORMATION
  Report Type: 
  Country: None (occurrence: None)
  Receive Date: 20080508
  Receipt Date: 20080508
  Transmission Date: 20081010
  Serious: Yes (Life-Threatening, Disabling)
  Sender: FDA-Public Use
  Company Number: None

PATIENT
  Age: 50 Year

DRUGS (1)
  1. INSULIN INSULATARD NPH NORDISK [Suspect]
     Dosage: 50 UNITS,  25 UNITS
     Dates: start: 20071206, end: 20071207

REACTIONS (1)
  - BLOOD GLUCOSE DECREASED [None]
